FAERS Safety Report 7760919-0 (Version None)
Quarter: 2011Q3

REPORT INFORMATION
  Report Type: 
  Country: None (occurrence: None)
  Receive Date: 20110919
  Receipt Date: 20110907
  Transmission Date: 20111222
  Serious: No
  Sender: FDA-Public Use
  Company Number: FI-GENENTECH-324226

PATIENT
  Sex: Female

DRUGS (2)
  1. MABTHERA [Suspect]
     Indication: RHEUMATOID ARTHRITIS
     Dosage: 500 MG, UNK
     Route: 042
     Dates: start: 20100323
  2. MABTHERA [Suspect]
     Dosage: 500 MG, UNK
     Route: 042
     Dates: start: 20100412

REACTIONS (7)
  - MALAISE [None]
  - ABDOMINAL PAIN [None]
  - MYALGIA [None]
  - ALOPECIA [None]
  - LYMPHADENOPATHY [None]
  - INFECTION [None]
  - PYREXIA [None]
